FAERS Safety Report 16203219 (Version 2)
Quarter: 2019Q3

REPORT INFORMATION
  Report Type: Report from Study
  Country: JP (occurrence: JP)
  Receive Date: 20190416
  Receipt Date: 20190716
  Transmission Date: 20191004
  Serious: Yes (Hospitalization)
  Sender: FDA-Public Use
  Company Number: JP-B.I. PHARMACEUTICALS,INC./RIDGEFIELD-2019-NB-001750

PATIENT
  Age: 85 Year
  Sex: Female
  Weight: 39.5 kg

DRUGS (1)
  1. EMPAGLIFLOZIN [Suspect]
     Active Substance: EMPAGLIFLOZIN
     Indication: TYPE 2 DIABETES MELLITUS
     Route: 048
     Dates: start: 20151115, end: 20171129

REACTIONS (2)
  - Decreased appetite [Unknown]
  - Bronchitis [Unknown]

NARRATIVE: CASE EVENT DATE: 20171128
